FAERS Safety Report 20505758 (Version 1)
Quarter: 2022Q1

REPORT INFORMATION
  Report Type: Report from Study
  Country: US (occurrence: US)
  Receive Date: 20220223
  Receipt Date: 20220223
  Transmission Date: 20220423
  Serious: Yes (Other)
  Sender: FDA-Public Use
  Company Number: US-BAYER-2022A026386

PATIENT

DRUGS (3)
  1. GADOBUTROL [Suspect]
     Active Substance: GADOBUTROL
     Indication: Magnetic resonance imaging
     Dosage: UNK, ONCE
  2. OPTIMARK [Suspect]
     Active Substance: GADOVERSETAMIDE
  3. GADOLINIUM [Suspect]
     Active Substance: GADOLINIUM

REACTIONS (2)
  - Gadolinium deposition disease [None]
  - Urine analysis abnormal [None]
